FAERS Safety Report 7364225-8 (Version None)
Quarter: 2011Q1

REPORT INFORMATION
  Report Type: 
  Country: None (occurrence: None)
  Receive Date: 20110321
  Receipt Date: 20110314
  Transmission Date: 20110831
  Serious: Yes (Hospitalization)
  Sender: FDA-Public Use
  Company Number: A0886846A

PATIENT
  Age: 69 Year
  Sex: Male
  Weight: 122.7 kg

DRUGS (1)
  1. AVANDIA [Suspect]
     Dosage: 4MG PER DAY
     Route: 048
     Dates: start: 19990804, end: 20041122

REACTIONS (4)
  - CARDIAC FAILURE CONGESTIVE [None]
  - THALAMIC INFARCTION [None]
  - TRANSIENT ISCHAEMIC ATTACK [None]
  - LACUNAR INFARCTION [None]
